FAERS Safety Report 11068477 (Version 1)
Quarter: 2015Q2

REPORT INFORMATION
  Report Type: Spontaneous
  Country: US (occurrence: None)
  Receive Date: 20150424
  Receipt Date: 20150424
  Transmission Date: 20150821
  Serious: Yes (Life-Threatening, Hospitalization, Disabling, Other)
  Sender: FDA-Public Use
  Company Number: None

PATIENT
  Age: 51 Year
  Sex: Male
  Weight: 87.09 kg

DRUGS (4)
  1. FLECANAIDE ACETATE [Concomitant]
  2. ZITHROMAX [Suspect]
     Active Substance: AZITHROMYCIN DIHYDRATE
     Indication: BACTERIAL INFECTION
     Dosage: 1 PILL
     Route: 048
     Dates: start: 20101130, end: 20101205
  3. ATORVASTATIN [Concomitant]
     Active Substance: ATORVASTATIN
  4. MULTIVITAMIN [Concomitant]
     Active Substance: VITAMINS

REACTIONS (8)
  - Chills [None]
  - Condition aggravated [None]
  - Stress [None]
  - Wolff-Parkinson-White syndrome [None]
  - Neuralgia [None]
  - Activities of daily living impaired [None]
  - Syncope [None]
  - Atrial fibrillation [None]

NARRATIVE: CASE EVENT DATE: 20101128
